FAERS Safety Report 17318105 (Version 9)
Quarter: 2022Q1

REPORT INFORMATION
  Report Type: Report from Study
  Country: US (occurrence: US)
  Receive Date: 20200124
  Receipt Date: 20220208
  Transmission Date: 20220423
  Serious: Yes (Other)
  Sender: FDA-Public Use
  Company Number: None

PATIENT
  Age: 73 Year
  Sex: Female

DRUGS (4)
  1. BEOVU [Suspect]
     Active Substance: BROLUCIZUMAB-DBLL
     Indication: Neovascular age-related macular degeneration
     Dosage: 6 MG (ONE SINGLE DOSE)
     Route: 047
     Dates: start: 20191210
  2. BEOVU [Suspect]
     Active Substance: BROLUCIZUMAB-DBLL
     Dosage: UNK
     Route: 047
  3. BEOVU [Suspect]
     Active Substance: BROLUCIZUMAB-DBLL
     Dosage: UNK
     Route: 047
  4. BEOVU [Suspect]
     Active Substance: BROLUCIZUMAB-DBLL
     Dosage: UNK (OU)
     Route: 047
     Dates: start: 20200710

REACTIONS (16)
  - Neovascular age-related macular degeneration [Unknown]
  - Condition aggravated [Unknown]
  - Diplopia [Unknown]
  - Injection site pain [Unknown]
  - Dry eye [Recovering/Resolving]
  - Renal colic [Unknown]
  - Discomfort [Unknown]
  - Joint injury [Unknown]
  - Fall [Unknown]
  - Intra-ocular injection complication [Unknown]
  - Injection site erythema [Recovered/Resolved]
  - Cough [Recovered/Resolved]
  - Ocular hyperaemia [Unknown]
  - Ocular hyperaemia [Recovered/Resolved]
  - Vitreous floaters [Not Recovered/Not Resolved]
  - Therapeutic product effect incomplete [Unknown]

NARRATIVE: CASE EVENT DATE: 20191211
